FAERS Safety Report 16882347 (Version 2)
Quarter: 2019Q4

REPORT INFORMATION
  Report Type: Spontaneous
  Country: DK (occurrence: DK)
  Receive Date: 20191003
  Receipt Date: 20191008
  Transmission Date: 20200122
  Serious: Yes (Other)
  Sender: FDA-Public Use
  Company Number: DK-ALLERGAN-1939656US

PATIENT
  Sex: Female
  Weight: 68 kg

DRUGS (4)
  1. CITALOPRAM HYDROBROMIDE - BP [Suspect]
     Active Substance: CITALOPRAM HYDROBROMIDE
     Indication: ALCOHOL ABUSE
  2. CITALOPRAM HYDROBROMIDE - BP [Suspect]
     Active Substance: CITALOPRAM HYDROBROMIDE
     Indication: DEPRESSION
     Dosage: 10 MG
     Route: 065
  3. SELINCRO [Suspect]
     Active Substance: NALMEFENE HYDROCHLORIDE DIHYDRATE
     Indication: ALCOHOL ABUSE
     Route: 048
  4. SELINCRO [Suspect]
     Active Substance: NALMEFENE HYDROCHLORIDE DIHYDRATE
     Indication: DEPRESSION

REACTIONS (3)
  - Ideas of reference [Recovered/Resolved]
  - Psychotic symptom [Recovered/Resolved]
  - Hallucination, auditory [Recovered/Resolved]
